FAERS Safety Report 19216131 (Version 2)
Quarter: 2021Q4

REPORT INFORMATION
  Report Type: Spontaneous
  Country: ES (occurrence: ES)
  Receive Date: 20210505
  Receipt Date: 20211203
  Transmission Date: 20220303
  Serious: Yes (Hospitalization, Other)
  Sender: FDA-Public Use
  Company Number: ES-MEDAC-2021000820

PATIENT
  Age: 60 Year
  Sex: Female

DRUGS (2)
  1. METHOTREXATE [Suspect]
     Active Substance: METHOTREXATE
     Indication: Rheumatoid arthritis
     Dosage: UNK
  2. METHOTREXATE [Suspect]
     Active Substance: METHOTREXATE
     Indication: Crohn^s disease

REACTIONS (3)
  - Hypersensitivity pneumonitis [Recovering/Resolving]
  - Pulmonary toxicity [Recovering/Resolving]
  - Bronchiectasis [Recovering/Resolving]
